FAERS Safety Report 9458569 (Version 1)
Quarter: 2013Q3

REPORT INFORMATION
  Report Type: Spontaneous
  Country: FR (occurrence: FR)
  Receive Date: 20130814
  Receipt Date: 20130814
  Transmission Date: 20140515
  Serious: Yes (Hospitalization)
  Sender: FDA-Public Use
  Company Number: FR-UCBSA-094480

PATIENT
  Age: 23 Year
  Sex: Female

DRUGS (9)
  1. KEPPRA [Suspect]
     Indication: EPILEPSY
     Dates: start: 20130519, end: 20130607
  2. ROCEPHINE [Concomitant]
     Indication: MENINGOENCEPHALITIS HERPES SIMPLEX NEONATAL
     Dates: start: 201305, end: 201305
  3. FLAGYL [Concomitant]
     Indication: MENINGOENCEPHALITIS HERPES SIMPLEX NEONATAL
     Dates: start: 201305
  4. GENTAMICINE [Concomitant]
     Dates: start: 20130518, end: 201305
  5. AMOXICILLINE [Concomitant]
     Dates: start: 20130518, end: 201305
  6. CEFTRIAXONE [Concomitant]
     Dates: start: 20130518, end: 201305
  7. CLAFORAN [Concomitant]
     Dates: start: 201305, end: 20130527
  8. ZOVIRAX [Concomitant]
     Dates: start: 20130518, end: 20130524
  9. URBANYL [Concomitant]
     Indication: EPILEPSY
     Dates: start: 201305

REACTIONS (2)
  - Rash [Recovered/Resolved]
  - Rash maculo-papular [Recovered/Resolved]
